FAERS Safety Report 9579472 (Version 2)
Quarter: 2013Q4

REPORT INFORMATION
  Report Type: Spontaneous
  Country: US (occurrence: US)
  Receive Date: 20131001
  Receipt Date: 20131001
  Transmission Date: 20140711
  Serious: No
  Sender: FDA-Public Use
  Company Number: US-AMGEN-USASP2013007403

PATIENT
  Age: 49 Year
  Sex: Female
  Weight: 80.73 kg

DRUGS (8)
  1. ENBREL [Suspect]
     Indication: PSORIATIC ARTHROPATHY
     Dosage: 50 MG, QWK
     Route: 058
  2. ENBREL [Suspect]
     Indication: PSORIASIS
  3. LIPITOR [Concomitant]
     Dosage: 10 MG, UNK
  4. COZAAR [Concomitant]
     Dosage: 50 MG, UNK
  5. METFORMIN                          /00082702/ [Concomitant]
     Dosage: 850 MG, UNK
  6. CLOBETASOL [Concomitant]
     Dosage: 0.05 %, UNK
  7. FLUOCINONIDE [Concomitant]
     Dosage: 0.05 %, UNK
  8. PAXIL                              /00830802/ [Concomitant]

REACTIONS (5)
  - Arthralgia [Unknown]
  - Pruritus [Unknown]
  - Erythema [Unknown]
  - Dry skin [Unknown]
  - Psoriasis [Unknown]
